FAERS Safety Report 25035841 (Version 1)
Quarter: 2025Q1

REPORT INFORMATION
  Report Type: Spontaneous
  Country: US (occurrence: None)
  Receive Date: 20250303
  Receipt Date: 20250303
  Transmission Date: 20250409
  Serious: Yes (Hospitalization)
  Sender: FDA-CTU
  Company Number: None

PATIENT
  Sex: Male

DRUGS (3)
  1. OPSUMIT [Suspect]
     Active Substance: MACITENTAN
     Indication: Pulmonary arterial hypertension
     Dosage: FREQUENCY : DAILY;?
     Route: 048
     Dates: start: 202206
  2. SILDENAFIL CITRATE [Concomitant]
     Active Substance: SILDENAFIL CITRATE
  3. TREPROSTINIL DIOLAMINE [Concomitant]
     Active Substance: TREPROSTINIL DIOLAMINE

REACTIONS (10)
  - Diarrhoea [None]
  - Headache [None]
  - Dizziness [None]
  - Confusional state [None]
  - Anxiety [None]
  - Depression [None]
  - Fatigue [None]
  - Dyspnoea [None]
  - Brain natriuretic peptide increased [None]
  - Systemic inflammatory response syndrome [None]
